FAERS Safety Report 13967496 (Version 2)
Quarter: 2017Q3

REPORT INFORMATION
  Report Type: Spontaneous
  Country: DE (occurrence: DE)
  Receive Date: 20170914
  Receipt Date: 20170920
  Transmission Date: 20171128
  Serious: No
  Sender: FDA-Public Use
  Company Number: DE-TORRENT-00007062

PATIENT
  Age: 46 Year
  Sex: Female

DRUGS (1)
  1. LEVETIRACETAM HEUMANN [Suspect]
     Active Substance: LEVETIRACETAM

REACTIONS (1)
  - Drug ineffective [Unknown]
